FAERS Safety Report 17426359 (Version 1)
Quarter: 2020Q1

REPORT INFORMATION
  Report Type: Spontaneous
  Country: IN (occurrence: IN)
  Receive Date: 20200217
  Receipt Date: 20200217
  Transmission Date: 20200409
  Serious: Yes (Hospitalization, Other)
  Sender: FDA-Public Use
  Company Number: IN-SA-2020SA034426

PATIENT
  Age: 10 Year
  Sex: Male

DRUGS (10)
  1. ETHAMBUTOL [Concomitant]
     Active Substance: ETHAMBUTOL HYDROCHLORIDE
     Indication: PULMONARY TUBERCULOSIS
     Dosage: UNK
     Dates: start: 2018
  2. NEVIRAPINE. [Concomitant]
     Active Substance: NEVIRAPINE
     Indication: HIV INFECTION WHO CLINICAL STAGE I
     Dosage: UNK
     Dates: start: 201706
  3. ISONIAZID. [Suspect]
     Active Substance: ISONIAZID
     Indication: PULMONARY TUBERCULOSIS
     Dosage: UNK
     Dates: start: 2018
  4. ABACAVIR. [Concomitant]
     Active Substance: ABACAVIR
     Indication: HIV INFECTION WHO CLINICAL STAGE I
     Dosage: UNK
     Dates: start: 2018
  5. RIFAMPICIN [Suspect]
     Active Substance: RIFAMPIN
     Indication: PULMONARY TUBERCULOSIS
     Dosage: UNK
     Dates: start: 2018
  6. PYRAZINAMIDE. [Suspect]
     Active Substance: PYRAZINAMIDE
     Indication: PULMONARY TUBERCULOSIS
     Dosage: UNK
     Dates: start: 2018
  7. LAMIVUDINE. [Concomitant]
     Active Substance: LAMIVUDINE
     Indication: HIV INFECTION WHO CLINICAL STAGE I
     Dosage: UNK
     Dates: start: 201706
  8. LAMIVUDINE. [Concomitant]
     Active Substance: LAMIVUDINE
     Dosage: UNK
     Dates: start: 2018
  9. ZIDOVUDINE. [Concomitant]
     Active Substance: ZIDOVUDINE
     Indication: HIV INFECTION WHO CLINICAL STAGE I
     Dosage: UNK
     Dates: start: 201706
  10. EFAVIRENZ. [Concomitant]
     Active Substance: EFAVIRENZ
     Indication: HIV INFECTION WHO CLINICAL STAGE I
     Dosage: UNK
     Dates: start: 2018

REACTIONS (3)
  - Pancytopenia [Recovering/Resolving]
  - Febrile neutropenia [Recovering/Resolving]
  - Hepatic enzyme increased [Recovering/Resolving]
